FAERS Safety Report 20258354 (Version 1)
Quarter: 2021Q4

REPORT INFORMATION
  Report Type: Spontaneous
  Country: US (occurrence: None)
  Receive Date: 20211229
  Receipt Date: 20211229
  Transmission Date: 20220303
  Serious: Yes (Death)
  Sender: FDA-Public Use
  Company Number: None

PATIENT
  Sex: Male

DRUGS (4)
  1. INLYTA [Suspect]
     Active Substance: AXITINIB
     Indication: Renal cancer
     Dosage: FREQUENCY : EVERY 12 HOURS;?TAKE 1 TABLET BY MOUTH EVERY 12 HOURS. SWALLOW WHOLE. TAKE  WITH A GLASS
     Route: 048
     Dates: start: 20210921
  2. INLYTA [Suspect]
     Active Substance: AXITINIB
     Dosage: FREQUENCY : EVERY 12 HOURS;?
     Route: 048
  3. ELIQUIS [Concomitant]
     Active Substance: APIXABAN
  4. PLAVIX [Concomitant]
     Active Substance: CLOPIDOGREL BISULFATE

REACTIONS (1)
  - Death [None]
